FAERS Safety Report 7689523-X (Version None)
Quarter: 2011Q3

REPORT INFORMATION
  Report Type: 
  Country: None (occurrence: None)
  Receive Date: 20110817
  Receipt Date: 20110729
  Transmission Date: 20111222
  Serious: No
  Sender: FDA-Public Use
  Company Number: US-TYCO HEALTHCARE/MALLINCKRODT-T201101514

PATIENT
  Sex: Male
  Weight: 72.562 kg

DRUGS (1)
  1. FENTANYL-100 [Suspect]
     Indication: PAIN
     Dosage: 50 UG/HR Q 72 HRS
     Route: 062
     Dates: start: 20110101

REACTIONS (1)
  - COLD SWEAT [None]
